FAERS Safety Report 25831884 (Version 1)
Quarter: 2025Q3

REPORT INFORMATION
  Report Type: Spontaneous
  Country: EU (occurrence: EU)
  Receive Date: 20250922
  Receipt Date: 20250922
  Transmission Date: 20251021
  Serious: Yes (Hospitalization, Other)
  Sender: MERZ
  Company Number: None

PATIENT

DRUGS (2)
  1. XEOMIN [Suspect]
     Active Substance: INCOBOTULINUMTOXINA
     Indication: Torticollis
     Dosage: 50 INTERNATIONAL UNIT
     Route: 030
     Dates: start: 20250903, end: 20250903
  2. XEOMIN [Suspect]
     Active Substance: INCOBOTULINUMTOXINA
     Dosage: 100 INTERNATIONAL UNIT
     Route: 030
     Dates: start: 20250903, end: 20250903

REACTIONS (3)
  - Pneumonitis aspiration [Not Recovered/Not Resolved]
  - Cough [Unknown]
  - Dysphagia [Not Recovered/Not Resolved]

NARRATIVE: CASE EVENT DATE: 20250905
